FAERS Safety Report 23989328 (Version 2)
Quarter: 2024Q2

REPORT INFORMATION
  Report Type: Report from Study
  Country: ES (occurrence: ES)
  Receive Date: 20240619
  Receipt Date: 20240626
  Transmission Date: 20240716
  Serious: Yes (Other)
  Sender: FDA-Public Use
  Company Number: ES-JNJFOC-20240628482

PATIENT

DRUGS (1)
  1. STELARA [Suspect]
     Active Substance: USTEKINUMAB
     Indication: Crohn^s disease
     Route: 058

REACTIONS (6)
  - Mantle cell lymphoma [Unknown]
  - Neoplasm [Unknown]
  - Skin reaction [Unknown]
  - Nervous system disorder [Unknown]
  - Infection [Unknown]
  - Drug ineffective [Unknown]
